FAERS Safety Report 7954579-3 (Version None)
Quarter: 2011Q4

REPORT INFORMATION
  Report Type: 
  Country: None (occurrence: None)
  Receive Date: 20111202
  Receipt Date: 20111128
  Transmission Date: 20120403
  Serious: Yes (Other)
  Sender: FDA-Public Use
  Company Number: PHEH2011US08142

PATIENT
  Sex: Female

DRUGS (11)
  1. THYROID THERAPY [Concomitant]
  2. RECLAST [Suspect]
     Dosage: 5 MG\10ML
     Route: 042
  3. CRANBERRY [Concomitant]
  4. RECLAST [Suspect]
     Dosage: 5 MG\10ML
     Route: 042
     Dates: start: 20111024
  5. CADUET [Concomitant]
  6. EVISTA [Concomitant]
     Indication: OSTEOPOROSIS
  7. CALCIUM [Concomitant]
  8. VITAMIN D [Concomitant]
  9. FISH OIL [Concomitant]
  10. RECLAST [Suspect]
     Indication: OSTEOPOROSIS
     Dosage: 5 MG\100ML
     Route: 042
  11. VITAMINS NOS [Concomitant]

REACTIONS (2)
  - BONE DENSITY ABNORMAL [None]
  - TOOTH ABSCESS [None]
